FAERS Safety Report 20312979 (Version 1)
Quarter: 2022Q1

REPORT INFORMATION
  Report Type: Spontaneous
  Country: FR (occurrence: FR)
  Receive Date: 20220108
  Receipt Date: 20220108
  Transmission Date: 20220423
  Serious: Yes (Death, Other)
  Sender: FDA-Public Use
  Company Number: FR-AFSSAPS-CN20214037

PATIENT
  Age: 70 Year
  Sex: Female

DRUGS (6)
  1. AMIODARONE [Suspect]
     Active Substance: AMIODARONE
     Indication: Atrial fibrillation
     Dosage: 200 MILLIGRAM, ONCE A DAY
     Route: 048
     Dates: start: 20211017, end: 20211028
  2. DARZALEX [Suspect]
     Active Substance: DARATUMUMAB
     Indication: Plasma cell myeloma
     Dosage: 1800 MILLIGRAM
     Route: 058
     Dates: start: 20211007, end: 20211015
  3. DEXAMETHASONE ACETATE [Suspect]
     Active Substance: DEXAMETHASONE ACETATE
     Indication: Plasma cell myeloma
     Dosage: 40 MILLIGRAM
     Route: 041
     Dates: start: 20211007, end: 20211015
  4. INNOHEP [Suspect]
     Active Substance: TINZAPARIN SODIUM
     Indication: Arrhythmia prophylaxis
     Dosage: 12000 INTERNATIONAL UNIT, ONCE A DAY
     Route: 058
     Dates: start: 20211015, end: 20211028
  5. PIPERACILLIN SODIUM\TAZOBACTAM SODIUM [Suspect]
     Active Substance: PIPERACILLIN SODIUM\TAZOBACTAM SODIUM
     Indication: Antibiotic prophylaxis
     Dosage: UNK (EIGHT TIMES A DAY)
     Route: 041
     Dates: start: 20211018, end: 20211028
  6. REVLIMID [Suspect]
     Active Substance: LENALIDOMIDE
     Indication: Plasma cell myeloma
     Dosage: 25 MILLIGRAM, ONCE A DAY
     Route: 048
     Dates: start: 20211007, end: 20211028

REACTIONS (1)
  - Interstitial lung disease [Fatal]

NARRATIVE: CASE EVENT DATE: 20211028
